FAERS Safety Report 15539190 (Version 5)
Quarter: 2020Q4

REPORT INFORMATION
  Report Type: Spontaneous
  Country: PT (occurrence: PT)
  Receive Date: 20181022
  Receipt Date: 20201008
  Transmission Date: 20210113
  Serious: Yes (Other)
  Sender: FDA-Public Use
  Company Number: PHHY2018PT128310

PATIENT
  Age: 27 Year
  Sex: Male

DRUGS (11)
  1. RISPERIDONE. [Suspect]
     Active Substance: RISPERIDONE
     Indication: BEHAVIOUR DISORDER
     Dosage: 4 MG, QD
     Route: 048
  2. LORAZEPAM. [Suspect]
     Active Substance: LORAZEPAM
     Indication: BEHAVIOUR DISORDER
     Dosage: 10 MG, QD
     Route: 048
  3. LEVOMEPROMAZINE [Suspect]
     Active Substance: LEVOMEPROMAZINE
     Indication: BEHAVIOUR DISORDER
     Dosage: 300 MG, QD
     Route: 048
  4. RISPERIDONE. [Suspect]
     Active Substance: RISPERIDONE
     Indication: AGITATION
  5. DIAZEPAM. [Suspect]
     Active Substance: DIAZEPAM
     Indication: BEHAVIOUR DISORDER
     Dosage: 10 MG
     Route: 030
  6. LEVOMEPROMAZINE [Suspect]
     Active Substance: LEVOMEPROMAZINE
     Indication: AGITATION
     Dosage: 75 MG, QD (25 MG, 3 X PER DAY)
     Route: 048
  7. CHLORPROMAZINE HYDROCHLORIDE. [Suspect]
     Active Substance: CHLORPROMAZINE HYDROCHLORIDE
     Indication: BEHAVIOUR DISORDER
     Dosage: 50 MG
     Route: 030
  8. LEVOMEPROMAZINE [Suspect]
     Active Substance: LEVOMEPROMAZINE
     Indication: NEUROPSYCHIATRIC SYMPTOMS
     Dosage: 25 MG, TID
     Route: 065
  9. HALOPERIDOL. [Suspect]
     Active Substance: HALOPERIDOL
     Indication: BEHAVIOUR DISORDER
     Dosage: 10 MG
     Route: 030
  10. LORAZEPAM. [Suspect]
     Active Substance: LORAZEPAM
     Indication: AGITATION
  11. BIPERIDEN [Suspect]
     Active Substance: BIPERIDEN
     Indication: BEHAVIOUR DISORDER
     Dosage: 4 MG, QD
     Route: 048

REACTIONS (4)
  - Drug abuse [Unknown]
  - Therapeutic product cross-reactivity [Unknown]
  - Drug screen false positive [Recovered/Resolved]
  - Drug ineffective [Unknown]
